FAERS Safety Report 17443136 (Version 1)
Quarter: 2020Q1

REPORT INFORMATION
  Report Type: Spontaneous
  Country: US (occurrence: US)
  Receive Date: 20200206
  Receipt Date: 20200206
  Transmission Date: 20200409
  Serious: Yes (Hospitalization)
  Sender: FDA-Public Use
  Company Number: None

PATIENT
  Age: 58 Year
  Sex: Female

DRUGS (5)
  1. LINSINOPRIL [Concomitant]
     Active Substance: LISINOPRIL
  2. VITAMIN D [Concomitant]
     Active Substance: VITAMIN D NOS
  3. IBRANCE [Suspect]
     Active Substance: PALBOCICLIB
     Indication: CHRONIC KIDNEY DISEASE
     Dosage: 125MG QD 21DAY ON  7 DAYS OFF PO
     Route: 048
     Dates: start: 20180918
  4. ONDANSETRON [Concomitant]
     Active Substance: ONDANSETRON
  5. LETROZOLE. [Concomitant]
     Active Substance: LETROZOLE

REACTIONS (2)
  - Influenza [None]
  - Therapy cessation [None]

NARRATIVE: CASE EVENT DATE: 20200115
